FAERS Safety Report 5151065-3 (Version None)
Quarter: 2006Q4

REPORT INFORMATION
  Report Type: 
  Country: None (occurrence: None)
  Receive Date: 20061115
  Receipt Date: 20060920
  Transmission Date: 20070319
  Serious: Yes (Hospitalization)
  Sender: FDA-Public Use
  Company Number: JP-ABBOTT-06P-087-0344670-00

PATIENT
  Sex: Male
  Weight: 54 kg

DRUGS (20)
  1. ERYTHROMYCIN [Suspect]
     Indication: PNEUMONIA
     Route: 048
     Dates: start: 20000313, end: 20000319
  2. PRIMAXIN [Suspect]
     Indication: BACTERIAL INFECTION
     Dates: start: 20000313
  3. AMANTADINE HCL [Concomitant]
     Indication: INFLUENZA
     Route: 048
     Dates: start: 20000313, end: 20000317
  4. IMMUNE GLOBULIN INTRAVENOUS (HUMAN) [Concomitant]
     Indication: INFECTION
     Route: 042
     Dates: start: 20000313, end: 20000315
  5. CATECHOLAMINE [Concomitant]
     Indication: DRUG USE FOR UNKNOWN INDICATION
     Dates: start: 20000313, end: 20000401
  6. ULINASTATIN [Concomitant]
     Indication: SHOCK
     Route: 042
     Dates: start: 20000313, end: 20000315
  7. SULTAMICILLIN TOSILATE [Concomitant]
     Indication: PNEUMONIA
     Route: 042
     Dates: start: 20000318, end: 20000319
  8. SULPERAZON [Concomitant]
     Indication: PNEUMONIA
     Route: 042
     Dates: start: 20000320, end: 20000328
  9. CLINDAMYCIN [Concomitant]
     Indication: PNEUMONIA
     Route: 042
     Dates: start: 20000318, end: 20060328
  10. ARTIFICIAL RESPIRATORY MANAGEMENT [Concomitant]
     Indication: DRUG USE FOR UNKNOWN INDICATION
     Dates: start: 20060313
  11. INTRA-AORTIC BALLOON PUMPING [Concomitant]
     Indication: DRUG USE FOR UNKNOWN INDICATION
     Dates: start: 20050313
  12. PERCUTANEOUS CARDIOPULMONARY SUPPORT [Concomitant]
     Indication: VENTRICULAR TACHYCARDIA
  13. PRIMAXIN [Concomitant]
     Indication: PNEUMONIA
     Route: 042
     Dates: start: 20000313, end: 20000317
  14. LIDOCAINE [Concomitant]
     Indication: ARRHYTHMIA
     Route: 042
     Dates: start: 20000313, end: 20000314
  15. FAMOTIDINE [Concomitant]
     Indication: PROPHYLAXIS AGAINST GASTROINTESTINAL ULCER
     Route: 042
     Dates: start: 20000313, end: 20000314
  16. DESLANOSIDE [Concomitant]
     Indication: TACHYCARDIA
     Route: 042
     Dates: start: 20000313, end: 20000314
  17. HEPARIN [Concomitant]
     Indication: THROMBOSIS PROPHYLAXIS
     Dosage: 1500 - 5000 UNITS
     Route: 042
     Dates: start: 20000313, end: 20000320
  18. FUROSEMIDE [Concomitant]
     Indication: CARDIAC FAILURE
     Route: 042
     Dates: start: 20000314, end: 20000409
  19. NAFAMOSTAT MESILATE [Concomitant]
     Indication: SHOCK
     Route: 042
     Dates: start: 20000315, end: 20000328
  20. CONCENTRATED HUMAN RED BLOOD CELL [Concomitant]
     Indication: ANAEMIA
     Route: 042
     Dates: start: 20000315, end: 20000316

REACTIONS (1)
  - RENAL FAILURE [None]
